FAERS Safety Report 16015646 (Version 3)
Quarter: 2019Q1

REPORT INFORMATION
  Report Type: Spontaneous
  Country: JP (occurrence: JP)
  Receive Date: 20190228
  Receipt Date: 20190313
  Transmission Date: 20190418
  Serious: Yes (Hospitalization)
  Sender: FDA-Public Use
  Company Number: JP-ROCHE-2251498

PATIENT
  Age: 68 Year
  Sex: Female
  Weight: 57 kg

DRUGS (19)
  1. CELLCEPT [Suspect]
     Active Substance: MYCOPHENOLATE MOFETIL\MYCOPHENOLATE MOFETIL HYDROCHLORIDE
     Route: 048
     Dates: start: 20181006, end: 20181120
  2. BENET [Concomitant]
     Active Substance: RISEDRONATE SODIUM
     Dosage: DOSE INTERVAL UNCERTAINTY
     Route: 065
     Dates: start: 20180720
  3. BAKTAR [Suspect]
     Active Substance: SULFAMETHOXAZOLE\TRIMETHOPRIM
     Indication: PRODUCT USED FOR UNKNOWN INDICATION
     Route: 048
     Dates: start: 20150905, end: 20181103
  4. BISOPROLOL [Concomitant]
     Active Substance: BISOPROLOL
     Dosage: DOSE INTERVAL UNCERTAINTY
     Route: 065
     Dates: start: 20180926
  5. ETIZOLAM [Concomitant]
     Active Substance: ETIZOLAM
     Dosage: DOSE INTERVAL UNCERTAINTY
     Route: 065
     Dates: start: 20150901
  6. SAMSCA [Suspect]
     Active Substance: TOLVAPTAN
     Route: 048
     Dates: start: 20180702, end: 20180711
  7. MAGMITT [Concomitant]
     Active Substance: MAGNESIUM OXIDE
     Dosage: DOSE INTERVAL UNCERTAINTY
     Route: 065
     Dates: start: 20180706
  8. CRESTOR [Concomitant]
     Active Substance: ROSUVASTATIN CALCIUM
     Dosage: DOSE INTERVAL UNCERTAINTY
     Route: 065
     Dates: start: 20150930
  9. FUROSEMIDE. [Suspect]
     Active Substance: FUROSEMIDE
     Indication: PRODUCT USED FOR UNKNOWN INDICATION
     Route: 065
  10. SAMSCA [Suspect]
     Active Substance: TOLVAPTAN
     Indication: PRODUCT USED FOR UNKNOWN INDICATION
     Route: 048
     Dates: start: 20180619, end: 20180623
  11. LASIX [Concomitant]
     Active Substance: FUROSEMIDE
     Route: 048
     Dates: start: 20150902, end: 20181106
  12. PREDONINE [Concomitant]
     Active Substance: PREDNISOLONE
     Dosage: DOSE INTERVAL UNCERTAINTY
     Route: 065
     Dates: start: 20150905
  13. SAMSCA [Suspect]
     Active Substance: TOLVAPTAN
     Route: 048
     Dates: start: 20180712, end: 20181107
  14. ALDACTONE A [Concomitant]
     Active Substance: SPIRONOLACTONE
     Route: 065
  15. NEXIUM [Concomitant]
     Active Substance: ESOMEPRAZOLE MAGNESIUM
     Dosage: DOSE INTERVAL UNCERTAINTY
     Route: 065
     Dates: start: 20150916
  16. DILTIAZEM HYDROCHLORIDE. [Concomitant]
     Active Substance: DILTIAZEM HYDROCHLORIDE
     Dosage: DOSE INTERVAL UNCERTAINTY
     Route: 065
     Dates: start: 20180705
  17. CELLCEPT [Suspect]
     Active Substance: MYCOPHENOLATE MOFETIL\MYCOPHENOLATE MOFETIL HYDROCHLORIDE
     Indication: POLYMYOSITIS
     Route: 048
     Dates: start: 201810, end: 20181118
  18. EDIROL [Concomitant]
     Active Substance: ELDECALCITOL
     Dosage: DOSE INTERVAL UNCERTAINTY
     Route: 048
     Dates: start: 20150905
  19. LIXIANA [Concomitant]
     Active Substance: EDOXABAN TOSYLATE
     Dosage: DOSE INTERVAL UNCERTAINTY
     Route: 065
     Dates: start: 20180926

REACTIONS (4)
  - Hyponatraemia [Unknown]
  - Anaemia macrocytic [Recovered/Resolved]
  - Off label use [Unknown]
  - Intentional product use issue [Unknown]

NARRATIVE: CASE EVENT DATE: 20181102
